FAERS Safety Report 7604865-1 (Version None)
Quarter: 2011Q3

REPORT INFORMATION
  Report Type: 
  Country: None (occurrence: None)
  Receive Date: 20110712
  Receipt Date: 20110629
  Transmission Date: 20111222
  Serious: Yes (Other)
  Sender: FDA-Public Use
  Company Number: US-AMGEN-USASP2011033542

PATIENT
  Sex: Female
  Weight: 3.6 kg

DRUGS (2)
  1. ENBREL [Suspect]
     Dosage: UNK
     Route: 064
  2. ENBREL [Suspect]
     Dosage: UNK
     Route: 064

REACTIONS (2)
  - EXTRAOCULAR MUSCLE PARESIS [None]
  - BIRTH TRAUMA [None]
